FAERS Safety Report 9471469 (Version 1)
Quarter: 2013Q3

REPORT INFORMATION
  Report Type: Spontaneous
  Country: US (occurrence: US)
  Receive Date: 20130822
  Receipt Date: 20130822
  Transmission Date: 20140515
  Serious: No
  Sender: FDA-Public Use
  Company Number: US-TEVA-426780USA

PATIENT
  Age: 16 Year
  Sex: Female
  Weight: 47.67 kg

DRUGS (7)
  1. PARAGARD 380A [Suspect]
     Indication: CONTRACEPTION
     Route: 015
     Dates: start: 20130301, end: 20130812
  2. LATUDA [Concomitant]
     Dosage: 40 MILLIGRAM DAILY;
     Route: 048
  3. CELEXA [Concomitant]
     Dosage: 30 MILLIGRAM DAILY;
  4. STRATTERA [Concomitant]
     Indication: ATTENTION DEFICIT/HYPERACTIVITY DISORDER
     Dosage: 30 MILLIGRAM DAILY;
  5. VYVANSE [Concomitant]
     Indication: ATTENTION DEFICIT/HYPERACTIVITY DISORDER
     Dosage: ONCE
     Route: 048
  6. LAMICTAL [Concomitant]
     Dosage: 25 MILLIGRAM DAILY;
     Route: 048
  7. BROMOCRIPTINE [Concomitant]

REACTIONS (2)
  - Amenorrhoea [Recovered/Resolved]
  - Device expulsion [Recovered/Resolved]
